FAERS Safety Report 21875466 (Version 3)
Quarter: 2023Q1

REPORT INFORMATION
  Report Type: Other
  Country: SE (occurrence: SE)
  Receive Date: 20230118
  Receipt Date: 20230124
  Transmission Date: 20230417
  Serious: Yes (Other)
  Sender: FDA-Public Use
  Company Number: SE-CELLTRION INC.-2023SE000357

PATIENT

DRUGS (21)
  1. RITUXIMAB [Suspect]
     Active Substance: RITUXIMAB
     Indication: Diffuse large B-cell lymphoma
     Dosage: 1ST SYSTEMIC TREATMENT
     Dates: start: 20190903, end: 20191216
  2. RITUXIMAB [Suspect]
     Active Substance: RITUXIMAB
     Dosage: 2ND SYSTEMIC TREATMENT
     Dates: start: 20201022, end: 20201203
  3. RITUXIMAB [Suspect]
     Active Substance: RITUXIMAB
     Dosage: 4TH SYSTEMIC TREATMENT
     Dates: start: 20220218, end: 20220512
  4. RITUXIMAB [Suspect]
     Active Substance: RITUXIMAB
     Dosage: 5TH SYSTEMIC TREATMENT
     Dates: start: 20220810, end: 20220908
  5. BENDAMUSTINE [Suspect]
     Active Substance: BENDAMUSTINE
     Indication: Diffuse large B-cell lymphoma
     Dosage: 5TH SYSTEMIC TREATMENT
     Dates: start: 20220810, end: 20220908
  6. PREDNISONE [Suspect]
     Active Substance: PREDNISONE
     Indication: Diffuse large B-cell lymphoma
     Dosage: 1ST SYSTEMIC TREATMENT
     Dates: start: 20190903, end: 20191216
  7. IFOSFAMIDE [Suspect]
     Active Substance: IFOSFAMIDE
     Indication: Diffuse large B-cell lymphoma
     Dosage: 4TH SYSTEMIC TREATMENT
     Dates: start: 20220218, end: 20220512
  8. OXALIPLATIN [Suspect]
     Active Substance: OXALIPLATIN
     Indication: Diffuse large B-cell lymphoma
     Dosage: UNK
     Dates: start: 20201022, end: 20201203
  9. VINCRISTINE [Suspect]
     Active Substance: VINCRISTINE
     Indication: Diffuse large B-cell lymphoma
     Dosage: 1ST SYSTEMIC TREATMENT
     Dates: start: 20190903, end: 20191216
  10. POLIVY [Suspect]
     Active Substance: POLATUZUMAB VEDOTIN-PIIQ
     Indication: Diffuse large B-cell lymphoma
     Dosage: 5TH SYSTEMIC TREATMENT
     Dates: start: 20220810, end: 20220908
  11. DEXAMETHASONE [Suspect]
     Active Substance: DEXAMETHASONE
     Indication: Diffuse large B-cell lymphoma
     Dosage: 2ND SYSTEMIC TREATMENT
     Dates: start: 20201022, end: 20201203
  12. CARMUSTINE [Suspect]
     Active Substance: CARMUSTINE
     Indication: Diffuse large B-cell lymphoma
     Dosage: 3RD SYSTEMIC TREATMENT
     Dates: start: 20210115, end: 20210115
  13. DOXORUBICIN [Suspect]
     Active Substance: DOXORUBICIN
     Indication: Diffuse large B-cell lymphoma
     Dosage: 1ST SYSTEMIC TREATMENT
     Dates: start: 20190903, end: 20191216
  14. MELPHALAN [Suspect]
     Active Substance: MELPHALAN
     Indication: Diffuse large B-cell lymphoma
     Dosage: 3RD SYSTEMIC TREATMENT
     Dates: start: 20210115, end: 20210115
  15. CYTARABINE [Suspect]
     Active Substance: CYTARABINE
     Indication: Diffuse large B-cell lymphoma
     Dosage: 2ND SYSTEMIC TREATMENT
     Dates: start: 20201022, end: 20201203
  16. CYTARABINE [Suspect]
     Active Substance: CYTARABINE
     Dosage: 3RD SYSTEMIC TREATMENT
     Dates: start: 20210115, end: 20210115
  17. CARBOPLATIN [Suspect]
     Active Substance: CARBOPLATIN
     Indication: Diffuse large B-cell lymphoma
     Dosage: 4TH SYSTEMIC TREATMENT
     Dates: start: 20220218, end: 20220512
  18. ETOPOSIDE [Suspect]
     Active Substance: ETOPOSIDE
     Indication: Diffuse large B-cell lymphoma
     Dosage: UNK
     Dates: start: 20190903, end: 20191216
  19. ETOPOSIDE [Suspect]
     Active Substance: ETOPOSIDE
     Dosage: 3RD SYSTEMIC TREATMENT
     Dates: start: 20210115, end: 20210115
  20. ETOPOSIDE [Suspect]
     Active Substance: ETOPOSIDE
     Dosage: 4TH SYSTEMIC TREATMENT
     Dates: start: 20220218, end: 20220512
  21. CYCLOPHOSPHAMIDE [Suspect]
     Active Substance: CYCLOPHOSPHAMIDE
     Indication: Diffuse large B-cell lymphoma
     Dosage: 1ST SYSTEMIC TREATMENT
     Dates: start: 20190903, end: 20191216

REACTIONS (5)
  - Prostate cancer [Unknown]
  - Prostate cancer [Unknown]
  - Blood lactate dehydrogenase increased [Unknown]
  - Drug ineffective [Unknown]
  - Product use issue [Unknown]

NARRATIVE: CASE EVENT DATE: 20220701
